FAERS Safety Report 11749372 (Version 1)
Quarter: 2015Q4

REPORT INFORMATION
  Report Type: Other
  Country: IN (occurrence: IN)
  Receive Date: 20151118
  Receipt Date: 20151118
  Transmission Date: 20160304
  Serious: Yes (Other)
  Sender: FDA-Public Use
  Company Number: IN-JUBILANT GENERICS LIMITED-1044350

PATIENT
  Age: 28 Year
  Sex: Male

DRUGS (4)
  1. CETIRIZINE [Concomitant]
     Active Substance: CETIRIZINE HYDROCHLORIDE
  2. OLANZAPINE. [Suspect]
     Active Substance: OLANZAPINE
  3. TRIHEXYPHENIDYL HYDROCHLORIDE. [Concomitant]
     Active Substance: TRIHEXYPHENIDYL HYDROCHLORIDE
  4. ERYTHROMYCIN TABLET [Concomitant]

REACTIONS (2)
  - Drug interaction [Recovered/Resolved]
  - Akathisia [Recovered/Resolved]

NARRATIVE: CASE EVENT DATE: 20151109
